FAERS Safety Report 14144850 (Version 1)
Quarter: 2017Q4

REPORT INFORMATION
  Report Type: Spontaneous
  Country: ES (occurrence: ES)
  Receive Date: 20171031
  Receipt Date: 20171031
  Transmission Date: 20180321
  Serious: Yes (Other)
  Sender: FDA-Public Use
  Company Number: ES-BAYER-2017-203677

PATIENT
  Sex: Female

DRUGS (2)
  1. CLOTRIMAZOLE (TOPICAL) [Suspect]
     Active Substance: CLOTRIMAZOLE
     Indication: VULVOVAGINAL MYCOTIC INFECTION
  2. CLOTRIMAZOLE (TOPICAL) [Suspect]
     Active Substance: CLOTRIMAZOLE
     Indication: ANAL FUNGAL INFECTION
     Dosage: UNK

REACTIONS (3)
  - Off label use [Unknown]
  - Anal fungal infection [Not Recovered/Not Resolved]
  - Product use issue [Unknown]
